FAERS Safety Report 11986753 (Version 1)
Quarter: 2016Q1

REPORT INFORMATION
  Report Type: Spontaneous
  Country: US (occurrence: US)
  Receive Date: 20160202
  Receipt Date: 20160202
  Transmission Date: 20160526
  Serious: No
  Sender: FDA-Public Use
  Company Number: US-UCBSA-2015002187

PATIENT
  Sex: Female

DRUGS (1)
  1. KEPPRA [Suspect]
     Active Substance: LEVETIRACETAM
     Indication: SEIZURE
     Dosage: UNKNOWN DOSE

REACTIONS (6)
  - Headache [Unknown]
  - Depression [Unknown]
  - Asthenia [Unknown]
  - Abnormal behaviour [Unknown]
  - Pain in extremity [Unknown]
  - Tic [Unknown]
